FAERS Safety Report 7544001-3 (Version None)
Quarter: 2011Q2

REPORT INFORMATION
  Report Type: 
  Country: None (occurrence: None)
  Receive Date: 20110613
  Receipt Date: 20050428
  Transmission Date: 20111010
  Serious: Yes (Other)
  Sender: FDA-Public Use
  Company Number: PHNR2005AU00715

PATIENT
  Sex: Female

DRUGS (1)
  1. CLOZAPINE [Suspect]
     Indication: SCHIZOPHRENIA
     Dates: start: 19980406, end: 20050329

REACTIONS (8)
  - NEUTROPENIA [None]
  - THROMBOCYTOPENIA [None]
  - LYMPHOPENIA [None]
  - LEUKOPENIA [None]
  - INSOMNIA [None]
  - LOWER RESPIRATORY TRACT INFECTION [None]
  - HAEMOPHILUS INFECTION [None]
  - CATATONIA [None]
